FAERS Safety Report 14640573 (Version 1)
Quarter: 2018Q1

REPORT INFORMATION
  Report Type: Spontaneous
  Country: JP (occurrence: JP)
  Receive Date: 20180315
  Receipt Date: 20180315
  Transmission Date: 20180509
  Serious: Yes (Hospitalization, Other)
  Sender: FDA-Public Use
  Company Number: JP-GLAXOSMITHKLINE-JP2018JPN007719

PATIENT
  Age: 88 Year
  Sex: Female
  Weight: 45 kg

DRUGS (17)
  1. MECOBALAMIN [Concomitant]
     Active Substance: METHYLCOBALAMIN
     Dosage: UNK
     Dates: start: 20160912
  2. EPADEL S [Concomitant]
     Active Substance: ICOSAPENT ETHYL
     Dosage: UNK
  3. AMLODIPINE [Concomitant]
     Active Substance: AMLODIPINE BESYLATE
     Dosage: UNK
  4. ARASENA-A [Concomitant]
     Active Substance: VIDARABINE
     Dosage: UNK
     Dates: start: 20160911
  5. PARIET TABLET [Concomitant]
     Dosage: UNK
     Dates: start: 20160912
  6. ZOVIRAX [Suspect]
     Active Substance: ACYCLOVIR
     Indication: HERPES ZOSTER
     Dosage: 250 MG, TID
     Route: 041
     Dates: start: 20160914, end: 20160915
  7. MUCOSTA TABLETS [Concomitant]
     Dosage: UNK
  8. FLOMOX TABLETS [Concomitant]
     Dosage: UNK
     Dates: start: 20160912
  9. BIO-THREE [Concomitant]
     Active Substance: HERBALS
     Dosage: UNK
     Dates: start: 20160912
  10. THYRADIN S [Concomitant]
     Active Substance: LEVOTHYROXINE SODIUM
     Dosage: UNK
  11. CIBENOL [Concomitant]
     Active Substance: CIFENLINE
     Dosage: UNK
  12. VALACICLOVIR HYDROCHLORIDE [Suspect]
     Active Substance: VALACYCLOVIR HYDROCHLORIDE
     Indication: HERPES ZOSTER
     Dosage: 1000 MG, TID
     Route: 048
     Dates: start: 20160911, end: 20160913
  13. ROZEREM [Concomitant]
     Active Substance: RAMELTEON
     Dosage: UNK
     Dates: start: 20160912
  14. LOXONIN [Suspect]
     Active Substance: LOXOPROFEN SODIUM
     Dosage: UNK
     Route: 048
     Dates: start: 20160912
  15. SELBEX [Concomitant]
     Active Substance: TEPRENONE
     Dosage: UNK
     Dates: start: 20160912
  16. METILDIGOXIN [Concomitant]
     Active Substance: METILDIGOXIN
     Dosage: UNK
  17. ZOLPIDEM TARTRATE. [Concomitant]
     Active Substance: ZOLPIDEM TARTRATE
     Dosage: UNK

REACTIONS (13)
  - Hyperkalaemia [Recovering/Resolving]
  - Speech disorder [Unknown]
  - Fluid intake reduced [Unknown]
  - Incontinence [Unknown]
  - Restlessness [Unknown]
  - Pain [Unknown]
  - Hypophagia [Recovering/Resolving]
  - Toxic encephalopathy [Unknown]
  - Malaise [Unknown]
  - Dehydration [Unknown]
  - Depressed level of consciousness [Recovering/Resolving]
  - Renal impairment [Recovering/Resolving]
  - Acute kidney injury [Recovering/Resolving]

NARRATIVE: CASE EVENT DATE: 201609
